FAERS Safety Report 4359100-7 (Version None)
Quarter: 2004Q2

REPORT INFORMATION
  Report Type: 
  Country: None (occurrence: None)
  Receive Date: 20040512
  Receipt Date: 20040430
  Transmission Date: 20050107
  Serious: Yes (Hospitalization)
  Sender: FDA-Public Use
  Company Number: FR-JNJFOC-20040500051

PATIENT
  Age: 33 Year
  Sex: Male

DRUGS (3)
  1. RISPERDAL [Suspect]
     Indication: PSYCHOTIC DISORDER
     Dosage: SEE IMAGE
     Route: 048
     Dates: start: 20030401
  2. TRANXENE [Concomitant]
  3. LEPTICUR (TROPATEPINE HYDROCHLORIDE) [Concomitant]

REACTIONS (5)
  - CONDITION AGGRAVATED [None]
  - FACE OEDEMA [None]
  - PRURIGO [None]
  - PSYCHOTIC DISORDER [None]
  - RASH ERYTHEMATOUS [None]
